FAERS Safety Report 6349860-8 (Version None)
Quarter: 2009Q3

REPORT INFORMATION
  Report Type: 
  Country: None (occurrence: None)
  Receive Date: 20090911
  Receipt Date: 20090831
  Transmission Date: 20100115
  Serious: Yes (Hospitalization, Other)
  Sender: FDA-Public Use
  Company Number: US-ELI_LILLY_AND_COMPANY-US200908002679

PATIENT
  Sex: Female

DRUGS (11)
  1. FORTEO [Suspect]
     Indication: OSTEOPOROSIS
     Dosage: 20 UG, DAILY (1/D)
     Route: 058
     Dates: start: 20090601
  2. CALCIUM [Concomitant]
  3. VIT D [Concomitant]
  4. LEVOTHYROXINE SODIUM [Concomitant]
  5. TRIAMTERENE AND HYDROCHLOROTHIAZIDE [Concomitant]
  6. MULTIVIT [Concomitant]
  7. SLO-MAG [Concomitant]
  8. PREMARIN [Concomitant]
  9. LACTASE [Concomitant]
  10. LOVAZA [Concomitant]
  11. FLONASE [Concomitant]

REACTIONS (3)
  - FALL [None]
  - LUMBAR VERTEBRAL FRACTURE [None]
  - UPPER LIMB FRACTURE [None]
